FAERS Safety Report 6338495-9 (Version None)
Quarter: 2009Q3

REPORT INFORMATION
  Report Type: 
  Country: None (occurrence: None)
  Receive Date: 20090901
  Receipt Date: 20090818
  Transmission Date: 20100115
  Serious: Yes (Other)
  Sender: FDA-Public Use
  Company Number: GB-GDP-09406402

PATIENT
  Age: 60 Year
  Sex: Female

DRUGS (4)
  1. METVIXIA [Suspect]
     Indication: POROKERATOSIS
     Dosage: (TOPICAL)
     Route: 061
     Dates: start: 20090223, end: 20090223
  2. ANTIVIRALS NOS () [Concomitant]
  3. AMITRIPTYLINE [Concomitant]
  4. LANSOPRAZOL [Concomitant]

REACTIONS (5)
  - INFECTION [None]
  - OEDEMA PERIPHERAL [None]
  - PAIN IN EXTREMITY [None]
  - SKIN LESION [None]
  - WOUND SECRETION [None]
